FAERS Safety Report 17204188 (Version 1)
Quarter: 2019Q4

REPORT INFORMATION
  Report Type: Spontaneous
  Country: FR (occurrence: FR)
  Receive Date: 20191226
  Receipt Date: 20191226
  Transmission Date: 20200122
  Serious: Yes (Hospitalization, Other)
  Sender: FDA-Public Use
  Company Number: FR-MYLANLABS-2019M1127023

PATIENT
  Age: 38 Year
  Sex: Female

DRUGS (4)
  1. URBANYL [Suspect]
     Active Substance: CLOBAZAM
     Indication: PRODUCT USED FOR UNKNOWN INDICATION
     Dosage: 60 DOSAGE FORM, TOTAL (60 DF, TOTAL)
     Route: 048
     Dates: start: 20190714, end: 20190714
  2. LEVETIRACETAM. [Suspect]
     Active Substance: LEVETIRACETAM
     Indication: PRODUCT USED FOR UNKNOWN INDICATION
     Dosage: 1 DOSAGE FORM, ONCE (1 DF, TOTAL)
     Route: 048
     Dates: start: 20190714, end: 20190714
  3. CARBAMAZEPINE. [Suspect]
     Active Substance: CARBAMAZEPINE
     Indication: PRODUCT USED FOR UNKNOWN INDICATION
     Dosage: UNK UNK, UNK
     Route: 048
     Dates: start: 20190714, end: 20190714
  4. LACOSAMIDE. [Suspect]
     Active Substance: LACOSAMIDE
     Indication: PRODUCT USED FOR UNKNOWN INDICATION
     Dosage: 28 DOSAGE FORM, TOTAL (28 DF, TOTAL)
     Route: 048
     Dates: start: 20190714, end: 20190714

REACTIONS (9)
  - Tachycardia [Unknown]
  - Drug abuse [Unknown]
  - Overdose [Unknown]
  - Dysarthria [Unknown]
  - Somnolence [Unknown]
  - Intentional product misuse [Unknown]
  - Medication error [Unknown]
  - Poisoning deliberate [Recovered/Resolved]
  - Aphasia [Unknown]

NARRATIVE: CASE EVENT DATE: 20190714
